FAERS Safety Report 21870340 (Version 1)
Quarter: 2023Q1

REPORT INFORMATION
  Report Type: Other
  Country: US (occurrence: None)
  Receive Date: 20230117
  Receipt Date: 20230117
  Transmission Date: 20230418
  Serious: Yes (Other)
  Sender: FDA-Public Use
  Company Number: US-ROCHE-3262895

PATIENT
  Age: 63 Year
  Sex: Female

DRUGS (5)
  1. BEVACIZUMAB [Suspect]
     Active Substance: BEVACIZUMAB
     Indication: Metastatic malignant melanoma
     Route: 065
  2. PEMBROLIZUMAB [Suspect]
     Active Substance: PEMBROLIZUMAB
     Indication: Metastatic malignant melanoma
     Route: 065
  3. DENOSUMAB [Concomitant]
     Active Substance: DENOSUMAB
  4. TEMOZOLOMIDE [Concomitant]
     Active Substance: TEMOZOLOMIDE
     Dosage: DAILY FOR 6 WEEKS ON, 2 WEEKS OFF SCHEDULE
  5. TEMOZOLOMIDE [Concomitant]
     Active Substance: TEMOZOLOMIDE

REACTIONS (1)
  - Disease progression [Not Recovered/Not Resolved]
